FAERS Safety Report 4647202-7 (Version None)
Quarter: 2005Q2

REPORT INFORMATION
  Report Type: 
  Country: None (occurrence: None)
  Receive Date: 20050426
  Receipt Date: 20050426
  Transmission Date: 20051028
  Serious: Yes (Other)
  Sender: FDA-Public Use
  Company Number: None

PATIENT
  Sex: Female

DRUGS (7)
  1. ACTONEL [Suspect]
     Indication: OSTEOPOROSIS
     Dosage: 35 MG WEEKLY ORAL
     Route: 048
     Dates: start: 20040923, end: 20050415
  2. CALCIUM GLUCONATE [Concomitant]
  3. VITAMIN C [Concomitant]
  4. CHROMIUM [Concomitant]
  5. LORATADINE [Concomitant]
  6. VITAMIN E [Concomitant]
  7. MULTIVITAMIN W/IRON [Concomitant]

REACTIONS (1)
  - OESOPHAGITIS [None]
